FAERS Safety Report 6217254-1 (Version None)
Quarter: 2009Q2

REPORT INFORMATION
  Report Type: 
  Country: None (occurrence: None)
  Receive Date: 20090608
  Receipt Date: 20090526
  Transmission Date: 20091009
  Serious: Yes (Hospitalization)
  Sender: FDA-Public Use
  Company Number: GB-PFIZER INC-2009202887

PATIENT
  Age: 66 Year

DRUGS (1)
  1. SUNITINIB MALATE [Suspect]
     Indication: METASTATIC RENAL CELL CARCINOMA
     Dosage: 50 MG, 1X/DAY
     Route: 048
     Dates: start: 20090205

REACTIONS (6)
  - DIZZINESS [None]
  - FALL [None]
  - HAEMATEMESIS [None]
  - HEAD INJURY [None]
  - HYPOTENSION [None]
  - OESOPHAGITIS ULCERATIVE [None]
